FAERS Safety Report 5239638-0 (Version None)
Quarter: 2007Q1

REPORT INFORMATION
  Report Type: 
  Country: None (occurrence: None)
  Receive Date: 20070216
  Receipt Date: 20070214
  Transmission Date: 20070707
  Serious: Yes (Life-Threatening, Hospitalization)
  Sender: FDA-Public Use
  Company Number: FR-GLAXOSMITHKLINE-B0458318A

PATIENT
  Age: 43 Year
  Sex: Female
  Weight: 58 kg

DRUGS (15)
  1. COMBIVIR [Suspect]
     Indication: HIV INFECTION
     Dosage: 2UNIT PER DAY
     Route: 048
     Dates: end: 20070125
  2. CLAMOXYL [Suspect]
     Dosage: 2G SIX TIMES PER DAY
     Route: 042
     Dates: start: 20070123, end: 20070124
  3. CLAFORAN [Suspect]
     Dosage: 2.5G FOUR TIMES PER DAY
     Route: 042
     Dates: start: 20070123, end: 20070124
  4. DEPAKENE [Suspect]
     Route: 048
     Dates: start: 20070124, end: 20070125
  5. KALETRA [Suspect]
     Dosage: 2UNIT PER DAY
     Route: 048
     Dates: end: 20070125
  6. ZOVIRAX [Concomitant]
     Route: 048
  7. BACTRIM [Concomitant]
     Dosage: 1UNIT PER DAY
     Route: 048
     Dates: end: 20070125
  8. METHADONE HCL [Concomitant]
     Route: 065
  9. URBANYL [Concomitant]
     Route: 065
     Dates: start: 20070101, end: 20070101
  10. RIVOTRIL [Concomitant]
     Route: 065
     Dates: start: 20070101, end: 20070101
  11. CELOCURIN [Concomitant]
     Route: 065
     Dates: start: 20070128, end: 20070129
  12. PENTOTAL [Concomitant]
     Route: 065
     Dates: start: 20070128, end: 20070129
  13. TIENAM [Concomitant]
     Route: 065
     Dates: start: 20070125, end: 20070129
  14. AMIKLIN [Concomitant]
     Route: 065
     Dates: start: 20070125, end: 20070129
  15. GARDAN TAB [Concomitant]
     Route: 065
     Dates: start: 20070125

REACTIONS (26)
  - ANAEMIA [None]
  - ANGIOPATHY [None]
  - BLOOD BICARBONATE [None]
  - BLOOD CREATINE PHOSPHOKINASE INCREASED [None]
  - BLOOD CREATININE INCREASED [None]
  - BLOOD LACTATE DEHYDROGENASE INCREASED [None]
  - CONFUSIONAL STATE [None]
  - CONVULSION [None]
  - DEPRESSED LEVEL OF CONSCIOUSNESS [None]
  - HISTIOCYTOSIS HAEMATOPHAGIC [None]
  - HYPERCAPNIC ENCEPHALOPATHY [None]
  - HYPERLACTACIDAEMIA [None]
  - HYPERSENSITIVITY [None]
  - HYPOPHOSPHATAEMIA [None]
  - HYPOTENSION [None]
  - LACTIC ACIDOSIS [None]
  - LEUKOCYTOSIS [None]
  - MITOCHONDRIAL CYTOPATHY [None]
  - PANCYTOPENIA [None]
  - PNEUMONIA PNEUMOCOCCAL [None]
  - PYREXIA [None]
  - RASH [None]
  - RENAL DISORDER [None]
  - RESPIRATORY DISTRESS [None]
  - URINE ELECTROLYTES ABNORMAL [None]
  - WEIGHT DECREASED [None]
